FAERS Safety Report 6741811-7 (Version None)
Quarter: 2010Q2

REPORT INFORMATION
  Report Type: 
  Country: None (occurrence: None)
  Receive Date: 20100526
  Receipt Date: 20100517
  Transmission Date: 20101027
  Serious: Yes (Other)
  Sender: FDA-Public Use
  Company Number: BR-ROCHE-703895

PATIENT
  Sex: Female

DRUGS (2)
  1. XENICAL [Suspect]
     Indication: BLOOD CHOLESTEROL ABNORMAL
     Dosage: ROUTE, FORM, DOSE AND INDICATION UNSPECIFIED
     Route: 048
  2. XENICAL [Suspect]
     Dosage: INDICATION: DIGESTION AUXILIARY AND CHOLESTEROL CONTROL, ROUTE: ORAL
     Route: 048
     Dates: end: 20100514

REACTIONS (3)
  - ABDOMINAL PAIN UPPER [None]
  - GALLBLADDER DISORDER [None]
  - HEADACHE [None]
